FAERS Safety Report 6580336-9 (Version None)
Quarter: 2010Q1

REPORT INFORMATION
  Report Type: 
  Country: None (occurrence: None)
  Receive Date: 20100212
  Receipt Date: 20091214
  Transmission Date: 20100710
  Serious: No
  Sender: FDA-Public Use
  Company Number: US-ALLERGAN-0917136US

PATIENT
  Sex: Female

DRUGS (2)
  1. COMBIGAN [Suspect]
     Indication: GLAUCOMA
     Dosage: 1 GTT, BID
     Route: 047
     Dates: start: 20090601
  2. XALATAN [Concomitant]

REACTIONS (5)
  - DRY MOUTH [None]
  - DRY SKIN [None]
  - EYE PRURITUS [None]
  - OCULAR HYPERAEMIA [None]
  - SKIN EXFOLIATION [None]
